FAERS Safety Report 9921259 (Version 1)
Quarter: 2014Q1

REPORT INFORMATION
  Report Type: Spontaneous
  Country: PL (occurrence: PL)
  Receive Date: 20140225
  Receipt Date: 20140225
  Transmission Date: 20141002
  Serious: Yes (Hospitalization)
  Sender: FDA-Public Use
  Company Number: PL-VERTEX PHARMACEUTICALS INC-2014-000940

PATIENT
  Age: 48 Year
  Sex: Female

DRUGS (3)
  1. INCIVO [Suspect]
     Indication: HEPATITIS C
     Route: 048
     Dates: start: 20131008, end: 20131231
  2. RIBAVIRIN [Concomitant]
     Indication: HEPATITIS C
     Dates: start: 20131008
  3. INTERFERON ALFA [Concomitant]
     Indication: HEPATITIS C
     Dates: start: 20131008

REACTIONS (2)
  - Sepsis [Not Recovered/Not Resolved]
  - Asthenia [Not Recovered/Not Resolved]
